FAERS Safety Report 12613353 (Version 1)
Quarter: 2016Q3

REPORT INFORMATION
  Report Type: Spontaneous
  Country: US (occurrence: US)
  Receive Date: 20160802
  Receipt Date: 20160802
  Transmission Date: 20161109
  Serious: Yes (Other)
  Sender: FDA-Public Use
  Company Number: US-AMGEN-USASP2016097570

PATIENT
  Sex: Female

DRUGS (16)
  1. ARANESP [Suspect]
     Active Substance: DARBEPOETIN ALFA
     Indication: NEPHROGENIC ANAEMIA
  2. FISH OIL [Concomitant]
     Active Substance: FISH OIL
     Dosage: 300 MG, UNK
  3. VITAMIN B12 [Concomitant]
     Active Substance: CYANOCOBALAMIN
     Dosage: UNK UNK, MTHLY
  4. PANTOPRAZOLE [Concomitant]
     Active Substance: PANTOPRAZOLE SODIUM
     Dosage: SOD DR MG 1 DAILY
  5. LYRICA [Suspect]
     Active Substance: PREGABALIN
     Indication: PRODUCT USED FOR UNKNOWN INDICATION
     Dosage: 75 MG, (3 CAPSULES BY MOUTH AT BEDTIME AS DIRECTED)
     Route: 048
  6. TORSEMIDE. [Concomitant]
     Active Substance: TORSEMIDE
     Dosage: 20 MG, QOD (DIURETIC) 2 EVERY 2 DAYS
  7. FENTANYL. [Concomitant]
     Active Substance: FENTANYL
     Dosage: 50 MCG/HR PATCH CHANGE EVERY OTHER DAY
  8. LACTULOSE. [Concomitant]
     Active Substance: LACTULOSE
     Dosage: 10 CM/15ML SOLUTION 3 30ML TWICE DAY
  9. ARANESP [Suspect]
     Active Substance: DARBEPOETIN ALFA
     Indication: RENAL FAILURE
     Dosage: UNK
     Route: 065
     Dates: start: 2011
  10. OMEGA 3 [Concomitant]
     Active Substance: OMEGA-3 FATTY ACIDS
     Dosage: UNK UNK, QD (2 DAILY)
  11. URSODIOL. [Concomitant]
     Active Substance: URSODIOL
     Dosage: 300 MG, UNK (LIVER) 3 DAY
  12. DILAUDID [Concomitant]
     Active Substance: HYDROMORPHONE HYDROCHLORIDE
     Dosage: 4 MG, UNK (3 DAYS)
  13. EPOGEN [Suspect]
     Active Substance: ERYTHROPOIETIN
     Indication: BONE MARROW MYELOGRAM ABNORMAL
     Dosage: UNK
     Route: 065
     Dates: start: 2011
  14. KEFLEX [Concomitant]
     Active Substance: CEPHALEXIN
     Dosage: 500 MG, UNK
  15. LEVOTHYROXINE. [Concomitant]
     Active Substance: LEVOTHYROXINE
     Dosage: 55 MCG, (THYROID) 1 DAY
  16. KLOR-CON [Concomitant]
     Active Substance: POTASSIUM CHLORIDE
     Indication: PROPHYLAXIS
     Dosage: UNK (3 DAYS)

REACTIONS (10)
  - Bladder disorder [Unknown]
  - Drug ineffective [Unknown]
  - Hot flush [Unknown]
  - Muscle twitching [Unknown]
  - Ammonia abnormal [Unknown]
  - Precancerous skin lesion [Unknown]
  - Sleep apnoea syndrome [Unknown]
  - Breakthrough pain [Unknown]
  - Surgery [Unknown]
  - Nerve injury [Unknown]
